FAERS Safety Report 7625427-6 (Version None)
Quarter: 2011Q3

REPORT INFORMATION
  Report Type: 
  Country: None (occurrence: None)
  Receive Date: 20110721
  Receipt Date: 20110706
  Transmission Date: 20111222
  Serious: No
  Sender: FDA-Public Use
  Company Number: US-JNJFOC-20110706963

PATIENT
  Sex: Female
  Weight: 85.28 kg

DRUGS (14)
  1. BYETTA [Concomitant]
     Indication: DIABETES MELLITUS
     Route: 048
     Dates: end: 20110101
  2. CLONAZEPAM [Concomitant]
     Indication: ANXIETY
     Route: 048
  3. TOPAMAX [Concomitant]
     Indication: NEURALGIA
     Dosage: 1 1/2 TABLETS
     Route: 048
  4. METFORMIN HCL [Concomitant]
     Indication: DIABETES MELLITUS
     Route: 048
  5. ACTOS [Concomitant]
     Indication: DIABETES MELLITUS
     Route: 048
  6. PAXIL [Concomitant]
     Indication: PERSONALITY DISORDER
     Route: 048
  7. SEROQUEL [Concomitant]
     Indication: AFFECTIVE DISORDER
     Route: 048
  8. UNKNOWN MEDICATION [Concomitant]
     Indication: NEURALGIA
     Route: 048
  9. CYCLOBENZAPRINE [Concomitant]
     Indication: MUSCLE RELAXANT THERAPY
     Route: 048
  10. TRICOR [Concomitant]
     Indication: BLOOD TRIGLYCERIDES
     Route: 048
  11. FENTANYL-100 [Suspect]
     Indication: NEURALGIA
     Route: 062
     Dates: start: 20110101
  12. LITHIUM CARBONATE [Concomitant]
     Indication: AFFECTIVE DISORDER
     Route: 048
  13. PERCOCET [Concomitant]
     Indication: PAIN
     Dosage: 5/325 MG
     Route: 048
  14. RAMIPRIL [Concomitant]
     Indication: RENAL DISORDER
     Route: 048

REACTIONS (5)
  - PRODUCT ADHESION ISSUE [None]
  - WRONG TECHNIQUE IN DRUG USAGE PROCESS [None]
  - ABNORMAL LOSS OF WEIGHT [None]
  - BLOOD GLUCOSE DECREASED [None]
  - THERAPEUTIC RESPONSE DECREASED [None]
